FAERS Safety Report 24030177 (Version 1)
Quarter: 2024Q2

REPORT INFORMATION
  Report Type: Spontaneous
  Country: CN (occurrence: None)
  Receive Date: 20240628
  Receipt Date: 20240628
  Transmission Date: 20240715
  Serious: Yes (Other)
  Sender: FDA-Public Use
  Company Number: 2024A146269

PATIENT
  Age: 36 Year
  Sex: Female

DRUGS (4)
  1. OSIMERTINIB [Suspect]
     Active Substance: OSIMERTINIB
     Indication: Lung adenocarcinoma stage IV
     Route: 048
  2. OSIMERTINIB [Suspect]
     Active Substance: OSIMERTINIB
     Indication: Lung adenocarcinoma stage IV
     Route: 048
  3. PEMETREXED [Suspect]
     Active Substance: PEMETREXED
     Indication: Lung adenocarcinoma stage IV
     Dosage: 0.75 G ON THE FIRST DAY, REPEATED ONCE EVERY 3 WEEKS
  4. CARBOPLATIN [Suspect]
     Active Substance: CARBOPLATIN
     Indication: Lung adenocarcinoma stage IV
     Dosage: 500 MG ON THE FIRST DAY, REPEATED ONCE EVERY 3 WEEKS

REACTIONS (3)
  - Metastases to central nervous system [Unknown]
  - Gastrointestinal disorder [Unknown]
  - Neutrophil count decreased [Unknown]
